FAERS Safety Report 5518236-5 (Version None)
Quarter: 2007Q4

REPORT INFORMATION
  Report Type: 
  Country: None (occurrence: None)
  Receive Date: 20071113
  Receipt Date: 20071113
  Transmission Date: 20080405
  Serious: Yes (Hospitalization)
  Sender: FDA-Public Use
  Company Number: None

PATIENT
  Sex: Male
  Weight: 107 kg

DRUGS (5)
  1. CELEBREX [Suspect]
     Dosage: 22400 MG
  2. ACCUTANE [Suspect]
     Dosage: 3360 MG
  3. TEMOZOLOMIDE [Suspect]
     Dosage: 4200 MG
  4. THALOMID [Suspect]
     Dosage: 11200 MG
  5. DECADRON [Concomitant]

REACTIONS (6)
  - CHEST PAIN [None]
  - DYSPNOEA [None]
  - FLUID RETENTION [None]
  - GASTROOESOPHAGEAL REFLUX DISEASE [None]
  - PULMONARY EMBOLISM [None]
  - WEIGHT INCREASED [None]
